FAERS Safety Report 9251644 (Version 2)
Quarter: 2013Q2

REPORT INFORMATION
  Report Type: Spontaneous
  Country: US (occurrence: US)
  Receive Date: 20130424
  Receipt Date: 20130613
  Transmission Date: 20140414
  Serious: Yes (Hospitalization)
  Sender: FDA-Public Use
  Company Number: US-ASTRAZENECA-2013SE27432

PATIENT
  Age: 42 Year
  Sex: Female

DRUGS (14)
  1. NEXIUM [Suspect]
     Indication: GASTROOESOPHAGEAL REFLUX DISEASE
     Dosage: ONCE A DAY IN MORNING BEFORE MEAL
     Route: 048
     Dates: start: 2002, end: 2011
  2. NEXIUM [Suspect]
     Indication: GASTROOESOPHAGEAL REFLUX DISEASE
     Route: 048
     Dates: start: 20030716
  3. NEXIUM [Suspect]
     Indication: GASTROOESOPHAGEAL REFLUX DISEASE
     Route: 048
     Dates: start: 20110905
  4. ZANTAC [Concomitant]
  5. TUMS [Concomitant]
  6. MILK OF MAGNESIA [Concomitant]
  7. METOPROLOL [Concomitant]
  8. ATENOLOL [Concomitant]
     Dates: start: 20030507
  9. LIPITOR [Concomitant]
     Dates: start: 20030507
  10. AMITRIPTYLINE [Concomitant]
     Dates: start: 20030606
  11. METHYLPRED PAK [Concomitant]
     Dates: start: 20030606
  12. EVISTA [Concomitant]
     Dates: start: 20030716
  13. BEXTRA [Concomitant]
     Dates: start: 20030829
  14. MOBIC [Concomitant]
     Dates: start: 20040128

REACTIONS (18)
  - Back pain [Unknown]
  - Gallbladder disorder [Unknown]
  - Osteoporosis [Unknown]
  - Bone disorder [Unknown]
  - Multiple fractures [Unknown]
  - Accident [Unknown]
  - Neck pain [Unknown]
  - Anxiety [Unknown]
  - Osteogenesis imperfecta [Unknown]
  - Angina pectoris [Unknown]
  - Spinal osteoarthritis [Unknown]
  - Glaucoma [Unknown]
  - Fibromyalgia [Unknown]
  - Hypertension [Unknown]
  - Coronary artery disease [Unknown]
  - Emotional distress [Unknown]
  - Radiculopathy [Unknown]
  - Intervertebral disc degeneration [Unknown]
